FAERS Safety Report 7343831-0 (Version None)
Quarter: 2011Q1

REPORT INFORMATION
  Report Type: 
  Country: None (occurrence: None)
  Receive Date: 20110310
  Receipt Date: 20110302
  Transmission Date: 20110831
  Serious: Yes (Other)
  Sender: FDA-Public Use
  Company Number: US-ROCHE-746341

PATIENT
  Sex: Male
  Weight: 72.4 kg

DRUGS (4)
  1. CONCERTA [Concomitant]
  2. ALLEGRA [Concomitant]
  3. ACCUTANE [Suspect]
     Indication: ACNE
     Route: 048
     Dates: start: 20030601, end: 20040101
  4. CEPHALEXIN [Concomitant]

REACTIONS (6)
  - DEHYDRATION [None]
  - PARONYCHIA [None]
  - BLOOD TRIGLYCERIDES INCREASED [None]
  - ANAL FISTULA [None]
  - CROHN'S DISEASE [None]
  - OSTEOPENIA [None]
